FAERS Safety Report 11566793 (Version 1)
Quarter: 2015Q3

REPORT INFORMATION
  Report Type: Spontaneous
  Country: NL (occurrence: NL)
  Receive Date: 20150929
  Receipt Date: 20150929
  Transmission Date: 20151125
  Serious: Yes (Death, Hospitalization)
  Sender: FDA-Public Use
  Company Number: NL-SUN PHARMACEUTICAL INDUSTRIES LTD-13SUNZOL03P

PATIENT
  Age: 75 Year
  Sex: Female

DRUGS (2)
  1. ZOLEDRONIC ACID [Suspect]
     Active Substance: ZOLEDRONIC ACID
     Indication: OSTEOPOROSIS
     Dosage: ONCE A YEAR INFUSIONS OF 5 MG
     Route: 042
  2. PAMIDRONATE [Suspect]
     Active Substance: PAMIDRONATE DISODIUM
     Indication: OSTEOPOROSIS
     Dosage: 60 MG EVERY 3 MONTHS
     Route: 042

REACTIONS (5)
  - Pseudomonas infection [Unknown]
  - Candida pneumonia [Fatal]
  - Respiratory failure [Fatal]
  - Osteonecrosis of jaw [Unknown]
  - Candida infection [Unknown]
